FAERS Safety Report 24981511 (Version 1)
Quarter: 2025Q1

REPORT INFORMATION
  Report Type: Spontaneous
  Country: US (occurrence: US)
  Receive Date: 20250218
  Receipt Date: 20250218
  Transmission Date: 20250409
  Serious: Yes (Other)
  Sender: PFIZER
  Company Number: US-PFIZER INC-PV202500018498

PATIENT
  Age: 61 Year
  Sex: Male

DRUGS (2)
  1. LORBRENA [Suspect]
     Active Substance: LORLATINIB
     Dates: start: 202209
  2. LORBRENA [Suspect]
     Active Substance: LORLATINIB
     Dates: start: 202309

REACTIONS (5)
  - Hallucination [Unknown]
  - Peripheral swelling [Unknown]
  - Cognitive disorder [Unknown]
  - Fatigue [Unknown]
  - Blood cholesterol increased [Unknown]
